FAERS Safety Report 17241416 (Version 1)
Quarter: 2020Q1

REPORT INFORMATION
  Report Type: Spontaneous
  Country: US (occurrence: US)
  Receive Date: 20200107
  Receipt Date: 20200107
  Transmission Date: 20200409
  Serious: No
  Sender: FDA-Public Use
  Company Number: US-MALLINCKRODT-T201906465

PATIENT
  Age: 30 Year
  Sex: Male

DRUGS (1)
  1. BUPRENORPHINE/NALOXONE [Suspect]
     Active Substance: BUPRENORPHINE\NALOXONE
     Indication: PRODUCT USED FOR UNKNOWN INDICATION
     Dosage: 16 MG IN THE MORNING AND 4 AT NIGHT
     Route: 065
     Dates: start: 201909

REACTIONS (6)
  - Dizziness [Unknown]
  - Product taste abnormal [Unknown]
  - Eyelid ptosis [Unknown]
  - Dysarthria [Unknown]
  - Gait disturbance [Unknown]
  - Somnolence [Unknown]

NARRATIVE: CASE EVENT DATE: 201909
